FAERS Safety Report 9402998 (Version 1)
Quarter: 2013Q3

REPORT INFORMATION
  Report Type: Spontaneous
  Country: US (occurrence: US)
  Receive Date: 20130716
  Receipt Date: 20130716
  Transmission Date: 20140515
  Serious: Yes (Other)
  Sender: FDA-Public Use
  Company Number: US-BAYER-2013-085978

PATIENT
  Sex: Female

DRUGS (2)
  1. YASMIN [Suspect]
     Dosage: UNK
     Dates: start: 200202
  2. YAZ [Suspect]
     Dosage: UNK
     Dates: start: 200202

REACTIONS (5)
  - Pulmonary embolism [None]
  - Injury [None]
  - Pain [None]
  - Fear of disease [None]
  - Pain [None]
